FAERS Safety Report 16058185 (Version 2)
Quarter: 2019Q1

REPORT INFORMATION
  Report Type: Spontaneous
  Country: US (occurrence: US)
  Receive Date: 20190311
  Receipt Date: 20190311
  Transmission Date: 20190418
  Serious: Yes (Other)
  Sender: FDA-Public Use
  Company Number: US-GILEAD-2019-0389814

PATIENT
  Sex: Male

DRUGS (12)
  1. MIRALAX [Concomitant]
     Active Substance: POLYETHYLENE GLYCOL 3350
  2. NORMODYNE [Concomitant]
     Active Substance: LABETALOL HYDROCHLORIDE
     Dosage: 2 DF, BID
     Route: 048
  3. RAPAMUNE [Concomitant]
     Active Substance: SIROLIMUS
  4. NORVASC [Concomitant]
     Active Substance: AMLODIPINE BESYLATE
  5. AMBIEN [Concomitant]
     Active Substance: ZOLPIDEM TARTRATE
  6. ASPIRIN [ACETYLSALICYLIC ACID] [Concomitant]
     Active Substance: ASPIRIN
  7. VOSEVI [Suspect]
     Active Substance: SOFOSBUVIR\VELPATASVIR\VOXILAPREVIR
     Indication: CHRONIC HEPATITIS C
     Dosage: UNK
     Route: 065
     Dates: start: 20180423, end: 20180711
  8. RIBAVIRIN. [Suspect]
     Active Substance: RIBAVIRIN
     Indication: CHRONIC HEPATITIS C
     Dosage: UNK
     Route: 065
     Dates: start: 20180423, end: 20180711
  9. MYFORTIC [Concomitant]
     Active Substance: MYCOPHENOLATE SODIUM
  10. COLACE [Concomitant]
     Active Substance: DOCUSATE SODIUM
  11. APRESOLINE HYDROCHLORIDE [Concomitant]
     Active Substance: HYDRALAZINE HYDROCHLORIDE
     Dosage: 100 MG, TID
  12. TUMS [CALCIUM CARBONATE;MAGNESIUM CARBONATE] [Concomitant]

REACTIONS (5)
  - Genotype drug resistance test positive [Unknown]
  - Hepatitis C [Unknown]
  - Immune system disorder [Unknown]
  - Drug interaction [Unknown]
  - Treatment failure [Unknown]

NARRATIVE: CASE EVENT DATE: 20181017
